FAERS Safety Report 6521994-4 (Version None)
Quarter: 2009Q4

REPORT INFORMATION
  Report Type: 
  Country: None (occurrence: None)
  Receive Date: 20091224
  Receipt Date: 20091221
  Transmission Date: 20100525
  Serious: Yes (Death)
  Sender: FDA-Public Use
  Company Number: 2009AC000159

PATIENT
  Age: 61 Year

DRUGS (2)
  1. DIGOXIN [Suspect]
     Dosage: PO
     Route: 048
     Dates: start: 20050101, end: 20071001
  2. EPINEPHRINE [Concomitant]

REACTIONS (8)
  - CARDIAC ARREST [None]
  - ECONOMIC PROBLEM [None]
  - FALL [None]
  - HYPERCHOLESTEROLAEMIA [None]
  - HYPERGLYCAEMIA [None]
  - MULTIPLE INJURIES [None]
  - SUDDEN DEATH [None]
  - UNRESPONSIVE TO STIMULI [None]
